FAERS Safety Report 6074105-6 (Version None)
Quarter: 2009Q1

REPORT INFORMATION
  Report Type: 
  Country: None (occurrence: None)
  Receive Date: 20090211
  Receipt Date: 20090204
  Transmission Date: 20090719
  Serious: Yes (Hospitalization, Other)
  Sender: FDA-Public Use
  Company Number: B0554697A

PATIENT
  Age: 38 Year
  Sex: Female

DRUGS (8)
  1. IMUREL [Suspect]
     Indication: CROHN'S DISEASE
     Route: 048
  2. DEROXAT [Suspect]
     Indication: DRUG USE FOR UNKNOWN INDICATION
     Route: 048
  3. REMICADE [Suspect]
     Indication: CROHN'S DISEASE
     Route: 042
  4. PARACETAMOL [Suspect]
     Indication: SELF-MEDICATION
     Route: 048
  5. TERCIAN [Suspect]
     Indication: DRUG USE FOR UNKNOWN INDICATION
     Dosage: 25MG FIVE TIMES PER DAY
     Route: 048
  6. THERALENE [Suspect]
     Indication: DRUG USE FOR UNKNOWN INDICATION
     Dosage: 10MG FIVE TIMES PER DAY
     Route: 048
  7. STILNOX [Concomitant]
     Route: 065
  8. TRANXENE [Concomitant]
     Dosage: 10MG FIVE TIMES PER DAY
     Route: 065

REACTIONS (9)
  - ABDOMINAL ABSCESS [None]
  - CATHETER RELATED INFECTION [None]
  - CHOLESTASIS [None]
  - FACTOR V DEFICIENCY [None]
  - HEPATOCELLULAR INJURY [None]
  - INTENTIONAL OVERDOSE [None]
  - PANCYTOPENIA [None]
  - PROTHROMBIN LEVEL DECREASED [None]
  - SEPSIS [None]
